FAERS Safety Report 7481022-3 (Version None)
Quarter: 2011Q2

REPORT INFORMATION
  Report Type: 
  Country: None (occurrence: None)
  Receive Date: 20110512
  Receipt Date: 20110512
  Transmission Date: 20111010
  Serious: Yes (Other)
  Sender: FDA-Public Use
  Company Number: None

PATIENT
  Age: 34 Year
  Sex: Male
  Weight: 110.2241 kg

DRUGS (2)
  1. CLONAZEPAM [Suspect]
     Indication: ANXIETY
     Dosage: 1-4X A DAY 1MG 4X DAY
     Dates: start: 19820701
  2. LORAZEPAM [Suspect]
     Indication: CONVULSION
     Dosage: 1-4X A DAY 1MG 4 X DAY
     Dates: start: 19820701

REACTIONS (2)
  - MUSCLE DISORDER [None]
  - TREMOR [None]
